FAERS Safety Report 11031326 (Version 2)
Quarter: 2015Q2

REPORT INFORMATION
  Report Type: Spontaneous
  Country: US (occurrence: US)
  Receive Date: 20150415
  Receipt Date: 20150521
  Transmission Date: 20150821
  Serious: No
  Sender: FDA-Public Use
  Company Number: US-PFIZER INC-2015123543

PATIENT
  Age: 64 Year
  Sex: Female
  Weight: 99.77 kg

DRUGS (2)
  1. GABAPENTIN. [Suspect]
     Active Substance: GABAPENTIN
     Indication: PAIN IN EXTREMITY
     Dosage: 200 MG, 3X/DAY
     Dates: start: 201410
  2. GABAPENTIN. [Suspect]
     Active Substance: GABAPENTIN
     Indication: BACK PAIN
     Dosage: 800 MG, 4X/DAY

REACTIONS (4)
  - Body height decreased [Unknown]
  - Intervertebral disc compression [Unknown]
  - Pain [Unknown]
  - Drug ineffective for unapproved indication [Unknown]
